FAERS Safety Report 19323854 (Version 1)
Quarter: 2021Q2

REPORT INFORMATION
  Report Type: Spontaneous
  Country: US (occurrence: US)
  Receive Date: 20210528
  Receipt Date: 20210528
  Transmission Date: 20210717
  Serious: No
  Sender: FDA-Public Use
  Company Number: US-SA-2021SA170832

PATIENT
  Sex: Female

DRUGS (5)
  1. DUPIXENT [Suspect]
     Active Substance: DUPILUMAB
     Indication: SEASONAL ALLERGY
     Route: 065
  2. DUPIXENT [Suspect]
     Active Substance: DUPILUMAB
     Indication: SEASONAL ALLERGY
  3. XYZAL ALLERGY 24HR [Suspect]
     Active Substance: LEVOCETIRIZINE DIHYDROCHLORIDE
     Route: 065
  4. DUPIXENT [Suspect]
     Active Substance: DUPILUMAB
     Indication: SEASONAL ALLERGY
  5. DUPIXENT [Suspect]
     Active Substance: DUPILUMAB
     Indication: SEASONAL ALLERGY

REACTIONS (2)
  - Drug effect less than expected [Unknown]
  - Product use in unapproved indication [Unknown]
